FAERS Safety Report 19946355 (Version 1)
Quarter: 2021Q4

REPORT INFORMATION
  Report Type: Spontaneous
  Country: DE (occurrence: DE)
  Receive Date: 20211012
  Receipt Date: 20211012
  Transmission Date: 20220303
  Serious: Yes (Hospitalization)
  Sender: FDA-Public Use
  Company Number: DE-ADRED-04669-01

PATIENT
  Age: 51 Year
  Sex: Male
  Weight: 95 kg

DRUGS (9)
  1. HYDROCHLOROTHIAZIDE [Suspect]
     Active Substance: HYDROCHLOROTHIAZIDE
     Indication: Product used for unknown indication
     Dosage: 12.5 MILLIGRAM (12.5 MG, 1-0-0-0, TABLETTEN)
     Route: 048
  2. TORSEMIDE [Suspect]
     Active Substance: TORSEMIDE
     Indication: Product used for unknown indication
     Dosage: 10 MILLIGRAM (10 MG, 1-0-0-0, TABLETTEN)
     Route: 048
  3. EPLERENONE [Suspect]
     Active Substance: EPLERENONE
     Indication: Product used for unknown indication
     Dosage: 25 MILLIGRAM (25 MG, 1-0-0-0, TABLETTEN)
     Route: 048
  4. CANDESARTAN [Concomitant]
     Active Substance: CANDESARTAN
     Dosage: 8 MILLIGRAM (8 MG, 1-0-0-0, TABLETTEN)
     Route: 048
  5. POTASSIUM CITRATE [Concomitant]
     Active Substance: POTASSIUM CITRATE
     Dosage: 2157.3 MILLIGRAM (2157.3 MG, 1-0-0-0, BEUTEL)
     Route: 048
  6. INSULIN GLULISINE [Concomitant]
     Active Substance: INSULIN GLULISINE
     Dosage: 1 INTERNATIONAL UNIT (1 IE, 13-15-12-0, FERTIGPEN)
     Route: 058
  7. FERROUS GLYCINE SULFATE [Concomitant]
     Active Substance: FERROUS GLYCINE SULFATE
     Dosage: 0.0025|30|0.5 MG, 1-0-0-0, KAPSELN
     Route: 048
  8. PANTOPRAZOLE [Concomitant]
     Active Substance: PANTOPRAZOLE
     Dosage: 40 MILLIGRAM (40 MG, 1-0-0-0, TABLETTEN)
     Route: 048
  9. INSULIN DETEMIR [Concomitant]
     Active Substance: INSULIN DETEMIR
     Dosage: 1 INTERNATIONAL UNIT (1 IE, 0-0-0-26, FERTIGPEN)
     Route: 058

REACTIONS (7)
  - Inguinal hernia [Unknown]
  - Waist circumference increased [Unknown]
  - Cough [Unknown]
  - Musculoskeletal pain [Unknown]
  - Decreased appetite [Unknown]
  - Ascites [Unknown]
  - Diarrhoea [Unknown]
